FAERS Safety Report 24681848 (Version 2)
Quarter: 2024Q4

REPORT INFORMATION
  Report Type: Report from Study
  Country: US (occurrence: US)
  Receive Date: 20241130
  Receipt Date: 20241217
  Transmission Date: 20250115
  Serious: Yes (Other)
  Sender: ABBVIE
  Company Number: US-ABBVIE-6025126

PATIENT
  Age: 89 Year
  Sex: Female

DRUGS (1)
  1. RINVOQ [Suspect]
     Active Substance: UPADACITINIB
     Indication: Rheumatoid arthritis
     Route: 048
     Dates: start: 20240922

REACTIONS (6)
  - Pelvic fracture [Recovering/Resolving]
  - Hypoacusis [Unknown]
  - Fall [Recovering/Resolving]
  - Nerve compression [Recovering/Resolving]
  - Neuralgia [Unknown]
  - Pelvic pain [Not Recovered/Not Resolved]

NARRATIVE: CASE EVENT DATE: 20240101
